FAERS Safety Report 15316379 (Version 2)
Quarter: 2019Q1

REPORT INFORMATION
  Report Type: Report from Study
  Country: None (occurrence: AR)
  Receive Date: 20180824
  Receipt Date: 20190119
  Transmission Date: 20190417
  Serious: Yes (Hospitalization, Other)
  Sender: FDA-Public Use
  Company Number: AR-ABBVIE-18K-007-2463231-00

PATIENT
  Age: 18 Year
  Sex: Female

DRUGS (1)
  1. HUMIRA [Suspect]
     Active Substance: ADALIMUMAB
     Indication: CROHN^S DISEASE
     Route: 058
     Dates: start: 20170518

REACTIONS (8)
  - Premature labour [Recovered/Resolved]
  - Live birth [Unknown]
  - Crohn^s disease [Unknown]
  - Blood pressure decreased [Recovered/Resolved]
  - Urinary tract infection [Unknown]
  - Exposure during pregnancy [Unknown]
  - Beta haemolytic streptococcal infection [Unknown]
  - Haemorrhage [Unknown]

NARRATIVE: CASE EVENT DATE: 20180730
